FAERS Safety Report 9306787 (Version 2)
Quarter: 2013Q2

REPORT INFORMATION
  Report Type: Spontaneous
  Country: US (occurrence: US)
  Receive Date: 20130523
  Receipt Date: 20130528
  Transmission Date: 20140414
  Serious: Yes (Other)
  Sender: FDA-Public Use
  Company Number: US-JNJFOC-20130509885

PATIENT
  Age: 68 Year
  Sex: Female

DRUGS (8)
  1. REMICADE [Suspect]
     Indication: RHEUMATOID ARTHRITIS
     Dosage: 2 INDUCTION DOSES
     Route: 042
     Dates: start: 20130403, end: 20130515
  2. REMICADE [Suspect]
     Indication: RHEUMATOID ARTHRITIS
     Route: 042
     Dates: start: 20120328, end: 20121204
  3. TYLENOL [Suspect]
     Route: 065
  4. TYLENOL [Suspect]
     Indication: PREMEDICATION
     Route: 065
     Dates: start: 20130515
  5. BENADRYL [Suspect]
     Indication: PREMEDICATION
     Route: 065
     Dates: start: 20130515
  6. METHOTREXATE [Concomitant]
     Indication: RHEUMATOID ARTHRITIS
     Route: 065
  7. SOLU MEDROL [Concomitant]
     Indication: PREMEDICATION
     Route: 065
     Dates: start: 20130515
  8. CLARITIN [Concomitant]
     Indication: PREMEDICATION
     Route: 065
     Dates: start: 20130515

REACTIONS (3)
  - Dyspnoea [Unknown]
  - Infusion related reaction [Unknown]
  - Adverse event [Unknown]
